FAERS Safety Report 6814322-8 (Version None)
Quarter: 2010Q3

REPORT INFORMATION
  Report Type: 
  Country: None (occurrence: None)
  Receive Date: 20100702
  Receipt Date: 20100621
  Transmission Date: 20110219
  Serious: Yes (Hospitalization)
  Sender: FDA-Public Use
  Company Number: US-SANOFI-AVENTIS-2010SA036517

PATIENT
  Age: 58 Year
  Sex: Female
  Weight: 154 kg

DRUGS (19)
  1. LOVENOX [Suspect]
     Route: 058
     Dates: start: 20080207, end: 20080210
  2. HEPARIN SODIUM [Suspect]
     Indication: DIALYSIS
     Dosage: DOSE:2500 UNIT(S)
     Route: 051
     Dates: start: 20080210, end: 20080211
  3. HEPARIN SODIUM [Suspect]
     Dosage: DOSE:3000 UNIT(S)
     Route: 051
     Dates: start: 20080212, end: 20080212
  4. HEPARIN SODIUM [Suspect]
     Dosage: IV BOLUS DOSE:3000 UNIT(S)
     Route: 051
     Dates: start: 20080213, end: 20080215
  5. HEPARIN SODIUM [Suspect]
     Dosage: IV BOLUS DOSE:3000 UNIT(S)
     Route: 051
     Dates: start: 20080215, end: 20080220
  6. HEPARIN SODIUM [Suspect]
     Dosage: IV BOLUS DOSE:1000 UNIT(S)
     Route: 051
     Dates: start: 20080215, end: 20080215
  7. HEPARIN SODIUM [Suspect]
     Dosage: DOSE:5000 UNIT(S)
     Route: 058
     Dates: start: 20080215, end: 20080221
  8. HEPARIN SODIUM [Suspect]
     Dosage: IV BOLUS DOSE:2000 UNIT(S)
     Route: 058
     Dates: start: 20080216, end: 20080220
  9. LISINOPRIL [Concomitant]
  10. TYLENOL [Concomitant]
  11. CEFOXIN [Concomitant]
  12. FUROSEMIDE [Concomitant]
  13. SODIUM CHLORIDE [Concomitant]
  14. FENTANYL [Concomitant]
  15. INSULIN [Concomitant]
  16. MORPHINE [Concomitant]
  17. PROMETHAZINE [Concomitant]
  18. AMBIEN [Concomitant]
  19. HYDROCHLOROTHIAZIDE [Concomitant]

REACTIONS (17)
  - ABDOMINAL DISTENSION [None]
  - ABDOMINAL PAIN [None]
  - ACUTE PRERENAL FAILURE [None]
  - ACUTE RESPIRATORY DISTRESS SYNDROME [None]
  - ANAEMIA [None]
  - DRUG HYPERSENSITIVITY [None]
  - HAEMORRHAGE [None]
  - HEPARIN-INDUCED THROMBOCYTOPENIA [None]
  - HYPOTENSION [None]
  - LEUKOCYTOSIS [None]
  - MULTI-ORGAN FAILURE [None]
  - OEDEMA PERIPHERAL [None]
  - OESOPHAGITIS ULCERATIVE [None]
  - SEPTIC SHOCK [None]
  - SYNCOPE [None]
  - UPPER GASTROINTESTINAL HAEMORRHAGE [None]
  - VAGINAL HAEMORRHAGE [None]
